FAERS Safety Report 20532035 (Version 1)
Quarter: 2022Q1

REPORT INFORMATION
  Report Type: Report from Study
  Country: US (occurrence: US)
  Receive Date: 20220301
  Receipt Date: 20220301
  Transmission Date: 20220423
  Serious: No
  Sender: FDA-Public Use
  Company Number: US-AMRYT PHARMACEUTICALS DAC-AEGR005205

PATIENT
  Sex: Female

DRUGS (1)
  1. MYALEPT [Suspect]
     Active Substance: METRELEPTIN
     Indication: Product used for unknown indication
     Dosage: 0.7 MILLIGRAM, QD
     Route: 058
     Dates: start: 20161007

REACTIONS (2)
  - Fatty acid deficiency [Unknown]
  - Growth retardation [Not Recovered/Not Resolved]
